FAERS Safety Report 9820234 (Version 1)
Quarter: 2013Q4

REPORT INFORMATION
  Report Type: Spontaneous
  Country: GR (occurrence: None)
  Receive Date: 20131024
  Receipt Date: 20131024
  Transmission Date: 20140711
  Serious: Yes (Death)
  Sender: FDA-Public Use
  Company Number: 2013-01584

PATIENT
  Age: 60 Year
  Sex: Male

DRUGS (3)
  1. QUETIAPINE FUMARATE [Suspect]
     Indication: SCHIZOPHRENIA
  2. AMISULPRIDE [Concomitant]
  3. LORAZEPAM [Concomitant]

REACTIONS (2)
  - Sudden cardiac death [None]
  - Overdose [None]
